FAERS Safety Report 6432663-3 (Version None)
Quarter: 2009Q4

REPORT INFORMATION
  Report Type: 
  Country: None (occurrence: None)
  Receive Date: 20091109
  Receipt Date: 20091029
  Transmission Date: 20100525
  Serious: Yes (Other)
  Sender: FDA-Public Use
  Company Number: HQWYE088229AUG06

PATIENT
  Sex: Female

DRUGS (7)
  1. EFFEXOR XR [Suspect]
     Indication: DEPRESSION
     Route: 048
     Dates: start: 20060731, end: 20060801
  2. EFFEXOR XR [Suspect]
     Route: 048
     Dates: start: 20060801
  3. ZOLPIDEM [Concomitant]
     Dosage: 10 MG, USE AS REQUIRED
  4. BROMAZEPAM [Concomitant]
     Route: 048
     Dates: start: 20060727
  5. INSULIN HUMAN [Concomitant]
     Indication: DIABETES MELLITUS
     Dosage: 32 IU (FREQUENCY UNSPECIFIED)
  6. AMITRIPTYLINE [Suspect]
     Indication: DEPRESSION
     Route: 048
     Dates: start: 20060806, end: 20060808
  7. METFORMIN [Concomitant]
     Indication: DIABETES MELLITUS
     Dosage: 850 MG (FREQUENCY UNSPECIFIED)

REACTIONS (3)
  - FALL [None]
  - HYPOTENSION [None]
  - RADIUS FRACTURE [None]
